FAERS Safety Report 5403790-4 (Version None)
Quarter: 2007Q3

REPORT INFORMATION
  Report Type: 
  Country: None (occurrence: None)
  Receive Date: 20070802
  Receipt Date: 20070725
  Transmission Date: 20080115
  Serious: Yes (Life-Threatening)
  Sender: FDA-Public Use
  Company Number: IT-BAYER-200714335GDS

PATIENT
  Age: 18 Year
  Sex: Male

DRUGS (4)
  1. CIPROXIN 400 [Suspect]
     Indication: PNEUMONIA
     Dosage: UNIT DOSE: 400 MG
     Route: 042
     Dates: start: 20070701, end: 20070712
  2. FRAXIPARINA [Suspect]
     Indication: THROMBOSIS PROPHYLAXIS
     Dosage: UNIT DOSE: 3800 IU
     Route: 058
     Dates: start: 20070627, end: 20070712
  3. LINEZOLID [Suspect]
     Indication: LUNG INFECTION
     Dosage: UNIT DOSE: 2 MG
     Route: 042
     Dates: start: 20070706, end: 20070712
  4. TAZOCIN [Concomitant]
     Indication: LUNG INFECTION
     Route: 042

REACTIONS (1)
  - THROMBOCYTOPENIA [None]
